FAERS Safety Report 7903047-3 (Version None)
Quarter: 2011Q4

REPORT INFORMATION
  Report Type: 
  Country: None (occurrence: None)
  Receive Date: 20111109
  Receipt Date: 20111019
  Transmission Date: 20120403
  Serious: Yes (Death)
  Sender: FDA-Public Use
  Company Number: US-CELGENEUS-163-20785-11102617

PATIENT
  Sex: Female

DRUGS (4)
  1. DEXAMETHASONE [Concomitant]
     Indication: MULTIPLE MYELOMA
     Route: 065
     Dates: start: 20050101
  2. THALOMID [Suspect]
     Indication: MULTIPLE MYELOMA
     Dosage: 100 MILLIGRAM
     Route: 048
     Dates: start: 20050701
  3. THALOMID [Suspect]
     Dosage: 50 MILLIGRAM
     Route: 048
     Dates: start: 20110801
  4. THALOMID [Suspect]
     Dosage: 50 MILLIGRAM
     Route: 048
     Dates: start: 20051001

REACTIONS (1)
  - MULTIPLE MYELOMA [None]
